FAERS Safety Report 14599567 (Version 1)
Quarter: 2018Q1

REPORT INFORMATION
  Report Type: Spontaneous
  Country: US (occurrence: US)
  Receive Date: 20180305
  Receipt Date: 20180305
  Transmission Date: 20180509
  Serious: Yes (Other)
  Sender: FDA-Public Use
  Company Number: PHEH2018US007257

PATIENT
  Age: 59 Year
  Sex: Female

DRUGS (1)
  1. RECLAST [Suspect]
     Active Substance: ZOLEDRONIC ACID
     Indication: OSTEOPOROSIS
     Dosage: 1 DF, ONCE/SINGLE
     Route: 042
     Dates: start: 20170608, end: 20170608

REACTIONS (6)
  - Streptococcal infection [Unknown]
  - Rash pruritic [Unknown]
  - Onychomadesis [Unknown]
  - Blister [Unknown]
  - Rash [Recovering/Resolving]
  - Nail infection [Unknown]

NARRATIVE: CASE EVENT DATE: 20170701
